FAERS Safety Report 17755938 (Version 1)
Quarter: 2020Q2

REPORT INFORMATION
  Report Type: Spontaneous
  Country: US (occurrence: US)
  Receive Date: 20200507
  Receipt Date: 20200507
  Transmission Date: 20200714
  Serious: Yes (Life-Threatening, Disabling, Other)
  Sender: FDA-Public Use
  Company Number: None

PATIENT
  Age: 41 Year
  Sex: Female
  Weight: 67.5 kg

DRUGS (1)
  1. PANTENE PRO-V EXPERT COLLECTION HAIR REGROWTH TREATMENT FOR WOMEN [Suspect]
     Active Substance: MINOXIDIL
     Indication: HAIR DISORDER
     Route: 061
     Dates: start: 20180801, end: 20180830

REACTIONS (4)
  - Wound infection staphylococcal [None]
  - Application site irritation [None]
  - Chemical burn [None]
  - Chemical burn of skin [None]

NARRATIVE: CASE EVENT DATE: 20180801
